FAERS Safety Report 24114359 (Version 2)
Quarter: 2024Q3

REPORT INFORMATION
  Report Type: Spontaneous
  Country: FR (occurrence: FR)
  Receive Date: 20240720
  Receipt Date: 20240802
  Transmission Date: 20241016
  Serious: Yes (Hospitalization, Other)
  Sender: RANBAXY
  Company Number: FR-AFSSAPS-TS2024000457

PATIENT
  Age: 61 Year
  Sex: Male
  Weight: 61 kg

DRUGS (1)
  1. IBUPROFEN [Suspect]
     Active Substance: IBUPROFEN
     Indication: Neck pain
     Dosage: UNK
     Route: 048
     Dates: start: 20240326, end: 20240328

REACTIONS (5)
  - Mediastinitis [Recovering/Resolving]
  - Pharyngeal abscess [Recovering/Resolving]
  - Abscess neck [Recovering/Resolving]
  - Pleurisy [Recovering/Resolving]
  - Intervertebral discitis [Recovering/Resolving]

NARRATIVE: CASE EVENT DATE: 20240328
